FAERS Safety Report 5220703-9 (Version None)
Quarter: 2007Q1

REPORT INFORMATION
  Report Type: 
  Country: None (occurrence: None)
  Receive Date: 20070125
  Receipt Date: 20070125
  Transmission Date: 20070707
  Serious: Yes (Hospitalization)
  Sender: FDA-Public Use
  Company Number: None

PATIENT
  Sex: Male
  Weight: 20.4119 kg

DRUGS (3)
  1. AMOXICILLIN [Suspect]
     Indication: OTITIS MEDIA
     Dosage: 250 MG PO
     Route: 048
     Dates: start: 20060104
  2. MOTRIN [Concomitant]
  3. AURALGAN [Concomitant]

REACTIONS (2)
  - EYE SWELLING [None]
  - SWELLING FACE [None]
